FAERS Safety Report 8596035 (Version 2)
Quarter: 2014Q1

REPORT INFORMATION
  Report Type: Spontaneous
  Country: US (occurrence: US)
  Receive Date: 20120605
  Receipt Date: 20140124
  Transmission Date: 20141002
  Serious: Yes (Hospitalization, Disabling, Other)
  Sender: FDA-Public Use
  Company Number: US-ASTRAZENECA-2012SE34697

PATIENT
  Age: 41 Year
  Sex: Male
  Weight: 131.5 kg

DRUGS (8)
  1. NEXIUM [Suspect]
     Indication: GASTROOESOPHAGEAL REFLUX DISEASE
     Dosage: TWICE DAILY
     Route: 048
     Dates: start: 2003
  2. PREVACID [Concomitant]
     Indication: GASTROOESOPHAGEAL REFLUX DISEASE
     Dosage: ONCE DAILY
     Dates: start: 2006
  3. PREVACID [Concomitant]
     Indication: GASTROENTERITIS VIRAL
     Dosage: ONCE DAILY
     Dates: start: 2006
  4. ZANTAC [Concomitant]
  5. TAGAMET [Concomitant]
  6. ALKA SELTZER [Concomitant]
  7. MYLANTA [Concomitant]
  8. LIPITOR [Concomitant]

REACTIONS (6)
  - Back injury [Unknown]
  - Spinal compression fracture [Unknown]
  - Nerve compression [Unknown]
  - Intervertebral disc protrusion [Unknown]
  - Osteoporosis [Unknown]
  - Multiple fractures [Unknown]
